FAERS Safety Report 11065960 (Version 2)
Quarter: 2015Q2

REPORT INFORMATION
  Report Type: Spontaneous
  Country: US (occurrence: US)
  Receive Date: 20150425
  Receipt Date: 20150525
  Transmission Date: 20150821
  Serious: No
  Sender: FDA-Public Use
  Company Number: US-JNJFOC-20131011931

PATIENT
  Age: 57 Year
  Sex: Female
  Weight: 54.43 kg

DRUGS (7)
  1. PREDNISONE. [Concomitant]
     Active Substance: PREDNISONE
     Indication: RHEUMATOID ARTHRITIS
     Route: 048
  2. CORTISONE [Concomitant]
     Active Substance: CORTISONE\HYDROCORTISONE
     Indication: RHEUMATOID ARTHRITIS
     Route: 048
  3. IRON [Concomitant]
     Active Substance: IRON
     Indication: ASTHENIA
     Dosage: 2-3 TIMES A DAY
     Route: 048
     Dates: start: 201307
  4. VITAMIN B12 [Concomitant]
     Active Substance: CYANOCOBALAMIN
     Indication: ASTHENIA
     Route: 048
     Dates: start: 201307
  5. AMLODIPINE [Concomitant]
     Active Substance: AMLODIPINE BESYLATE
     Indication: HYPERTENSION
     Route: 048
     Dates: start: 201304
  6. SIMPONI [Suspect]
     Active Substance: GOLIMUMAB
     Indication: RHEUMATOID ARTHRITIS
     Route: 058
     Dates: start: 2012
  7. METOPROLOL [Concomitant]
     Active Substance: METOPROLOL
     Indication: HYPERTENSION
     Route: 048
     Dates: start: 201304

REACTIONS (3)
  - Device malfunction [Not Recovered/Not Resolved]
  - Wrong technique in drug usage process [Not Recovered/Not Resolved]
  - Drug dose omission [Not Recovered/Not Resolved]

NARRATIVE: CASE EVENT DATE: 20131018
